FAERS Safety Report 8700646 (Version 3)
Quarter: 2012Q4

REPORT INFORMATION
  Report Type: 
  Country: DE (occurrence: DE)
  Receive Date: 20120802
  Receipt Date: 20120830
  Transmission Date: 20130627
  Serious: Yes (Other)
  Sender: FDA-Public Use
  Company Number: DE-GILEAD-2012-0058858

PATIENT
  Age: 62 None
  Sex: Male

DRUGS (1)
  1. VIREAD [Suspect]
     Indication: HEPATITIS B
     Dosage: 1 UNK, UNK
     Route: 048
     Dates: start: 2010

REACTIONS (2)
  - Squamous cell carcinoma [Not Recovered/Not Resolved]
  - Malignant neoplasm of unknown primary site [Not Recovered/Not Resolved]
